FAERS Safety Report 7927590-6 (Version None)
Quarter: 2011Q4

REPORT INFORMATION
  Report Type: 
  Country: None (occurrence: None)
  Receive Date: 20111118
  Receipt Date: 20111114
  Transmission Date: 20120403
  Serious: Yes (Other)
  Sender: FDA-Public Use
  Company Number: US-B.I. PHARMACEUTICALS,INC./RIDGEFIELD-2011-BP-26412PF

PATIENT
  Sex: Female

DRUGS (2)
  1. LIPITOR [Suspect]
  2. SPIRIVA [Suspect]

REACTIONS (1)
  - EMPHYSEMA [None]
